FAERS Safety Report 4633314-0 (Version None)
Quarter: 2005Q2

REPORT INFORMATION
  Report Type: 
  Country: None (occurrence: None)
  Receive Date: 20050408
  Receipt Date: 20030519
  Transmission Date: 20051028
  Serious: Yes (Other)
  Sender: FDA-Public Use
  Company Number: 5314

PATIENT
  Age: 33 Year
  Sex: Male

DRUGS (4)
  1. METOCLOPRAMIDE [Suspect]
     Indication: VOMITING
     Dosage: 10 MG DAILY IV
     Route: 042
     Dates: start: 20030514
  2. KETAMINE HCL [Concomitant]
     Indication: NAUSEA
  3. VERSED [Concomitant]
  4. FENTANYL [Concomitant]

REACTIONS (5)
  - DYSARTHRIA [None]
  - MUSCLE SPASMS [None]
  - TORTICOLLIS [None]
  - VISION BLURRED [None]
  - WISDOM TEETH REMOVAL [None]
